FAERS Safety Report 9610873 (Version 2)
Quarter: 2013Q4

REPORT INFORMATION
  Report Type: Report from Study
  Country: US (occurrence: US)
  Receive Date: 20131009
  Receipt Date: 20131010
  Transmission Date: 20140711
  Serious: Yes (Other)
  Sender: FDA-Public Use
  Company Number: US-ROCHE-1286535

PATIENT
  Age: 2 Year
  Sex: Female

DRUGS (1)
  1. NUTROPIN [Suspect]
     Indication: RENAL FAILURE CHRONIC
     Route: 058
     Dates: start: 201103, end: 201203

REACTIONS (1)
  - Hepatoblastoma [Unknown]
